FAERS Safety Report 15799863 (Version 2)
Quarter: 2019Q1

REPORT INFORMATION
  Report Type: Spontaneous
  Country: IL (occurrence: IL)
  Receive Date: 20190108
  Receipt Date: 20190125
  Transmission Date: 20190417
  Serious: No
  Sender: FDA-Public Use
  Company Number: IL-ASTRAZENECA-2019SE01778

PATIENT
  Age: 29371 Day
  Sex: Male

DRUGS (1)
  1. TAGRISSO [Suspect]
     Active Substance: OSIMERTINIB
     Indication: EGFR GENE MUTATION
     Dosage: 80.0MG UNKNOWN
     Route: 048
     Dates: start: 20180601, end: 20180620

REACTIONS (2)
  - Rash [Recovered/Resolved]
  - Asthenia [Recovered/Resolved]

NARRATIVE: CASE EVENT DATE: 20180601
